FAERS Safety Report 9764320 (Version 2)
Quarter: 2013Q4

REPORT INFORMATION
  Report Type: Spontaneous
  Country: KR (occurrence: KR)
  Receive Date: 20131217
  Receipt Date: 20131217
  Transmission Date: 20140711
  Serious: No
  Sender: FDA-Public Use
  Company Number: 2012SP000069

PATIENT
  Age: 61 Year
  Sex: Female

DRUGS (6)
  1. VANCOMYCIN [Suspect]
     Indication: ENDOPHTHALMITIS
  2. CEFTAZIDIME [Suspect]
     Indication: ENDOPHTHALMITIS
  3. AMPHOTERICIN B [Suspect]
     Indication: ENDOPHTHALMITIS
  4. LEVOFLOXACIN [Suspect]
     Indication: ENDOPHTHALMITIS
     Route: 042
  5. METHYLPREDNISOLONE [Suspect]
     Indication: ENDOPHTHALMITIS
     Route: 048
  6. DEXAMETHASONE [Suspect]
     Indication: ENDOPHTHALMITIS

REACTIONS (2)
  - Decreased immune responsiveness [Unknown]
  - Condition aggravated [Unknown]
